FAERS Safety Report 6729824-2 (Version None)
Quarter: 2010Q2

REPORT INFORMATION
  Report Type: 
  Country: None (occurrence: None)
  Receive Date: 20100518
  Receipt Date: 20100510
  Transmission Date: 20101027
  Serious: Yes (Death, Other)
  Sender: FDA-Public Use
  Company Number: US-TEVA-234537USA

PATIENT
  Age: 47 Year
  Sex: Female

DRUGS (9)
  1. BUPROPION HYDROCHLORIDE 75 MG + 100 MG TABLETS [Suspect]
  2. FLUOXETINE [Suspect]
  3. SERTRALINE HCL [Suspect]
  4. TRAZODONE HCL [Suspect]
  5. TRIMETHOPRIM [Suspect]
  6. OXYMORPHONE [Suspect]
  7. CHLORPHENAMINE [Suspect]
  8. METHAMPHETAMINE HYDROCHLORIDE [Suspect]
  9. ETHANOL [Suspect]

REACTIONS (3)
  - ALCOHOL POISONING [None]
  - DRUG TOXICITY [None]
  - PULMONARY CONGESTION [None]
